FAERS Safety Report 18162602 (Version 3)
Quarter: 2021Q1

REPORT INFORMATION
  Report Type: Spontaneous
  Country: US (occurrence: US)
  Receive Date: 20200818
  Receipt Date: 20210310
  Transmission Date: 20210419
  Serious: Yes (Other)
  Sender: FDA-Public Use
  Company Number: US-PFIZER INC-2019-06164

PATIENT
  Age: 29 Year
  Sex: Female
  Weight: 89 kg

DRUGS (5)
  1. DIAZEPAM. [Concomitant]
     Active Substance: DIAZEPAM
  2. MEKTOVI [Suspect]
     Active Substance: BINIMETINIB
     Indication: MALIGNANT MELANOMA
     Dosage: 45 MG, 2X/DAY (45MG TWICE DAILY)
     Route: 048
     Dates: start: 20190710
  3. OXYCODONE [Concomitant]
     Active Substance: OXYCODONE
  4. BRAFTOVI [Suspect]
     Active Substance: ENCORAFENIB
     Indication: MALIGNANT MELANOMA
     Dosage: 450 MG, 1X/DAY (450MG DAILY)
     Route: 048
     Dates: start: 20190710
  5. COMPAZINE [Concomitant]
     Active Substance: PROCHLORPERAZINE MALEATE

REACTIONS (7)
  - Amenorrhoea [Unknown]
  - Product dose omission issue [Unknown]
  - Dysmenorrhoea [Unknown]
  - Pneumonia [Unknown]
  - Staphylococcal infection [Unknown]
  - Neoplasm progression [Unknown]
  - Somnolence [Unknown]

NARRATIVE: CASE EVENT DATE: 201908
